FAERS Safety Report 8087630-3 (Version None)
Quarter: 2012Q1

REPORT INFORMATION
  Report Type: 
  Country: None (occurrence: None)
  Receive Date: 20120128
  Receipt Date: 20110526
  Transmission Date: 20120608
  Serious: No
  Sender: FDA-Public Use
  Company Number: US-ABBOTT-11P-163-0728693-00

PATIENT
  Sex: Female

DRUGS (7)
  1. ONDANSETRON HCL [Concomitant]
     Indication: NAUSEA
  2. HUMIRA [Suspect]
     Indication: CROHN'S DISEASE
     Dates: start: 20110125
  3. ENTOCORT EC [Concomitant]
     Indication: INFLAMMATION
  4. VICODAN [Concomitant]
     Indication: PAIN
  5. NORTREL 7/7/7 [Concomitant]
     Indication: CONTRACEPTION
     Dosage: BIRTH CONTROL PILLS
  6. TRAMADOL HCL [Concomitant]
     Indication: PRODUCT USED FOR UNKNOWN INDICATION
  7. TRAMADOL HCL [Concomitant]
     Indication: PAIN

REACTIONS (4)
  - DIARRHOEA [None]
  - INJECTION SITE URTICARIA [None]
  - INJECTION SITE PAIN [None]
  - RASH [None]
